FAERS Safety Report 4660529-8 (Version None)
Quarter: 2005Q2

REPORT INFORMATION
  Report Type: 
  Country: None (occurrence: None)
  Receive Date: 20050511
  Receipt Date: 20050511
  Transmission Date: 20051028
  Serious: Yes (Other)
  Sender: FDA-Public Use
  Company Number: None

PATIENT
  Age: 33 Year
  Sex: Female
  Weight: 90 kg

DRUGS (9)
  1. GAMMAGARD [Suspect]
     Indication: DERMATOMYOSITIS
     Dosage: 35G IV QD
     Route: 042
     Dates: start: 20050428
  2. GAMMAGARD [Suspect]
     Indication: DERMATOMYOSITIS
     Dosage: 35G IV QD
     Route: 042
     Dates: start: 20050429
  3. GAMMAGARD [Suspect]
     Indication: DERMATOMYOSITIS
     Dosage: 35G IV QD
     Route: 042
     Dates: start: 20050430
  4. GAMMAGARD [Suspect]
  5. BENADRYL [Concomitant]
  6. TYLENOL (CAPLET) [Concomitant]
  7. PREDNISONE TAB [Concomitant]
  8. PREVACID [Concomitant]
  9. ACTONEL [Concomitant]

REACTIONS (6)
  - DIZZINESS [None]
  - HEADACHE [None]
  - NAUSEA [None]
  - NUCHAL RIGIDITY [None]
  - RETCHING [None]
  - VOMITING [None]
